FAERS Safety Report 8574099-5 (Version None)
Quarter: 2012Q3

REPORT INFORMATION
  Report Type: 
  Country: None (occurrence: None)
  Receive Date: 20120806
  Receipt Date: 20120801
  Transmission Date: 20120928
  Serious: Yes (Hospitalization)
  Sender: FDA-Public Use
  Company Number: PHHY2012FR047098

PATIENT
  Sex: Male

DRUGS (9)
  1. VINCRISTINE [Suspect]
     Dosage: 12 MG, UNK
  2. PREDNISOLONE [Suspect]
     Dosage: 2400 MG, UNK
  3. MABTHERA [Suspect]
     Indication: LYMPHOMA
     Dosage: 14860 MG, UNK
     Route: 042
     Dates: start: 20101116, end: 20120401
  4. ANTIHISTAMINES [Concomitant]
  5. POLARAMINE [Concomitant]
  6. DOXORUBICIN HCL [Suspect]
     Indication: LYMPHOMA
     Dosage: 312 MG, UNK
     Route: 042
     Dates: start: 20100506, end: 20100901
  7. CYCLOPHOSPHAMIDE [Suspect]
     Dosage: 18000 MG, UNK
  8. ACETAMINOPHEN [Concomitant]
  9. METHYLPREDNISOLONE [Suspect]
     Dosage: 2280 MG, UNK
     Route: 042
     Dates: start: 20100506, end: 20100901

REACTIONS (1)
  - MALIGNANT MELANOMA [None]
